FAERS Safety Report 23341151 (Version 3)
Quarter: 2024Q2

REPORT INFORMATION
  Report Type: Report from Study
  Country: JP (occurrence: JP)
  Receive Date: 20231227
  Receipt Date: 20240509
  Transmission Date: 20240715
  Serious: Yes (Hospitalization)
  Sender: FDA-Public Use
  Company Number: JP-AstraZeneca-2023A283141

PATIENT
  Age: 65 Year
  Sex: Female

DRUGS (28)
  1. DENOSUMAB [Suspect]
     Active Substance: DENOSUMAB
     Indication: Metastases to bone
     Dosage: 120 MILLIGRAM, Q3MO
     Route: 058
     Dates: start: 20220823
  2. CAPECITABINE [Suspect]
     Active Substance: CAPECITABINE
     Indication: Breast cancer
     Dosage: 625 MILLIGRAM/SQ. METER, Q12H (ONCE)
     Route: 048
     Dates: start: 20240226
  3. CAPECITABINE [Suspect]
     Active Substance: CAPECITABINE
     Dosage: 625 MILLIGRAM/SQ. METER, Q12H (ONCE)
     Route: 048
     Dates: start: 20230131, end: 20230214
  4. CAPECITABINE [Suspect]
     Active Substance: CAPECITABINE
     Dosage: 625 MILLIGRAM/SQ. METER, Q12H (ONCE)
     Route: 048
     Dates: start: 20230221, end: 20230307
  5. CAPECITABINE [Suspect]
     Active Substance: CAPECITABINE
     Dosage: 625 MILLIGRAM/SQ. METER, Q12H (ONCE)
     Route: 048
     Dates: start: 20230314, end: 20230328
  6. CAPECITABINE [Suspect]
     Active Substance: CAPECITABINE
     Dosage: 625 MILLIGRAM/SQ. METER, Q12H (ONCE)
     Route: 048
     Dates: start: 20230404, end: 20230418
  7. CAPECITABINE [Suspect]
     Active Substance: CAPECITABINE
     Dosage: 625 MILLIGRAM/SQ. METER, Q12H (ONCE)
     Route: 048
     Dates: start: 20230425, end: 20230509
  8. CAPECITABINE [Suspect]
     Active Substance: CAPECITABINE
     Dosage: 625 MILLIGRAM/SQ. METER, Q12H (ONCE)
     Route: 048
     Dates: start: 20230516, end: 20230530
  9. CAPECITABINE [Suspect]
     Active Substance: CAPECITABINE
     Dosage: 625 MILLIGRAM/SQ. METER, Q12H (ONCE)
     Route: 048
     Dates: start: 20230606, end: 20230620
  10. CAPECITABINE [Suspect]
     Active Substance: CAPECITABINE
     Dosage: 625 MILLIGRAM/SQ. METER, Q12H (ONCE)
     Route: 048
     Dates: start: 20230627, end: 20230711
  11. CAPECITABINE [Suspect]
     Active Substance: CAPECITABINE
     Dosage: 625 MILLIGRAM/SQ. METER, Q12H (ONCE)
     Route: 048
     Dates: start: 20230718, end: 20230801
  12. CAPECITABINE [Suspect]
     Active Substance: CAPECITABINE
     Dosage: 625 MILLIGRAM/SQ. METER, Q12H (ONCE)
     Route: 048
     Dates: start: 20230808, end: 20230821
  13. CAPECITABINE [Suspect]
     Active Substance: CAPECITABINE
     Dosage: 625 MILLIGRAM/SQ. METER, Q12H (ONCE)
     Route: 048
     Dates: start: 20230829, end: 20230912
  14. CAPECITABINE [Suspect]
     Active Substance: CAPECITABINE
     Dosage: 625 MILLIGRAM/SQ. METER, Q12H (ONCE)
     Route: 048
     Dates: start: 20230919, end: 20231003
  15. CAPECITABINE [Suspect]
     Active Substance: CAPECITABINE
     Dosage: 625 MILLIGRAM/SQ. METER, Q12H (ONCE)
     Route: 048
     Dates: start: 20231010, end: 20231024
  16. CAPECITABINE [Suspect]
     Active Substance: CAPECITABINE
     Dosage: 625 MILLIGRAM/SQ. METER, Q12H (ONCE)
     Route: 048
     Dates: start: 20231031, end: 20231114
  17. CAPECITABINE [Suspect]
     Active Substance: CAPECITABINE
     Dosage: 625 MILLIGRAM/SQ. METER, Q12H (ONCE)
     Route: 048
     Dates: start: 20231121, end: 20231205
  18. CAPECITABINE [Suspect]
     Active Substance: CAPECITABINE
     Dosage: 625 MILLIGRAM/SQ. METER, Q12H (ONCE)
     Route: 048
     Dates: start: 20240226
  19. FAMOTIDINE [Concomitant]
     Active Substance: FAMOTIDINE
     Indication: Gastritis prophylaxis
     Dosage: 20 MILLIGRAM, QD
     Route: 048
     Dates: start: 20190108
  20. PREGABALIN [Concomitant]
     Active Substance: PREGABALIN
     Indication: Myalgia
     Dosage: 50 MILLIGRAM, ONCE EVERY 12HR
     Route: 048
     Dates: start: 20201027
  21. REBAMIPIDE [Concomitant]
     Active Substance: REBAMIPIDE
     Indication: Product used for unknown indication
     Dosage: 100 MILLIGRAM, ONCE EVERY 12HR
     Route: 048
     Dates: start: 20181106
  22. CALCIUM CARBONATE\CHOLECALCIFEROL\MAGNESIUM CARBONATE [Concomitant]
     Active Substance: CALCIUM CARBONATE\CHOLECALCIFEROL\MAGNESIUM CARBONATE
     Indication: Hypocalcaemia
     Dosage: 2 DOSAGE FORM, QD
     Route: 048
     Dates: start: 20170905
  23. FUROSEMIDE [Concomitant]
     Active Substance: FUROSEMIDE
     Indication: Product used for unknown indication
     Dosage: 40 MILLIGRAM, ONCE EVERY 12HR
     Route: 048
     Dates: start: 20230404
  24. LOXOPROFEN SODIUM [Concomitant]
     Active Substance: LOXOPROFEN SODIUM
     Indication: Back pain
     Dosage: 100 MG, AS NEEDED
     Route: 061
     Dates: start: 20220628
  25. LEVOTHYROXINE SODIUM [Concomitant]
     Active Substance: LEVOTHYROXINE SODIUM
     Indication: Product used for unknown indication
     Dosage: 62.5 MICROGRAM, QD
     Route: 048
     Dates: start: 2011
  26. AMLODIPINE [Concomitant]
     Active Substance: AMLODIPINE BESYLATE
     Indication: Hypertension
     Dosage: 2.5 MILLIGRAM, QD
     Route: 048
     Dates: start: 20230519
  27. Vasolan [Concomitant]
     Indication: Product used for unknown indication
     Dosage: 40 MILLIGRAM, QD
     Route: 048
     Dates: start: 2011
  28. BETAHISTINE MESILATE [Concomitant]
     Active Substance: BETAHISTINE MESILATE
     Indication: Dizziness
     Dosage: 6 MILLIGRAM, ONCE EVERY 8HR
     Route: 048
     Dates: start: 2018

REACTIONS (1)
  - Femur fracture [Recovering/Resolving]

NARRATIVE: CASE EVENT DATE: 20231211
